FAERS Safety Report 4722121-6 (Version None)
Quarter: 2005Q3

REPORT INFORMATION
  Report Type: 
  Country: None (occurrence: None)
  Receive Date: 20050722
  Receipt Date: 20040729
  Transmission Date: 20060218
  Serious: No
  Sender: FDA-Public Use
  Company Number: US-GLAXOSMITHKLINE-A0520311A

PATIENT
  Age: 67 Year
  Sex: Male
  Weight: 80.9 kg

DRUGS (9)
  1. AVANDIA [Suspect]
     Dosage: 4MG PER DAY
     Route: 048
  2. PREDNISONE [Concomitant]
  3. IMURAN [Concomitant]
  4. PROTONIX [Concomitant]
  5. TRAZODONE HCL [Concomitant]
  6. COUMADIN [Concomitant]
  7. VALIUM [Concomitant]
  8. BACTRIM [Concomitant]
  9. LASIX [Concomitant]

REACTIONS (1)
  - EOSINOPHILIA [None]
